FAERS Safety Report 11163558 (Version 1)
Quarter: 2015Q2

REPORT INFORMATION
  Report Type: Spontaneous
  Country: HR (occurrence: HR)
  Receive Date: 20150604
  Receipt Date: 20150604
  Transmission Date: 20150821
  Serious: Yes (Hospitalization, Other)
  Sender: FDA-Public Use
  Company Number: HR-TEVA-565511ISR

PATIENT
  Age: 60 Year
  Sex: Female

DRUGS (5)
  1. CAMPTO [Suspect]
     Active Substance: IRINOTECAN
     Indication: COLON CANCER
     Dosage: 319 MILLIGRAM DAILY; INFUSION AMPOULES, VIALS/BOTTLES
     Route: 042
     Dates: start: 20140804, end: 20140804
  2. DEXAMETHASON KRKA [Concomitant]
     Active Substance: DEXAMETHASONE
     Indication: PROPHYLAXIS OF NAUSEA AND VOMITING
     Dosage: 8 MILLIGRAM DAILY; AMPOULES
     Route: 042
     Dates: start: 20140804, end: 20140805
  3. FLUOROURACIL PLIVA [Suspect]
     Active Substance: FLUOROURACIL
     Indication: COLON CANCER
     Dosage: 2435 MILLIGRAM DAILY; VIALS
     Route: 042
     Dates: start: 20140804, end: 20140806
  4. GRANISETRON [Concomitant]
     Active Substance: GRANISETRON
     Indication: PROPHYLAXIS OF NAUSEA AND VOMITING
     Route: 042
     Dates: start: 20140804, end: 20140805
  5. CALCIUM FOLINATE [Concomitant]
     Active Substance: LEUCOVORIN CALCIUM
     Dosage: 600 MILLIGRAM DAILY; VIALS
     Route: 042
     Dates: start: 20140804, end: 20140804

REACTIONS (3)
  - Sepsis [Recovered/Resolved with Sequelae]
  - Febrile neutropenia [Recovered/Resolved with Sequelae]
  - Diarrhoea [Recovered/Resolved with Sequelae]

NARRATIVE: CASE EVENT DATE: 201408
